FAERS Safety Report 12309373 (Version 6)
Quarter: 2017Q2

REPORT INFORMATION
  Report Type: Spontaneous
  Country: US (occurrence: US)
  Receive Date: 20160427
  Receipt Date: 20170407
  Transmission Date: 20170830
  Serious: Yes (Congenital Anomaly, Other)
  Sender: FDA-Public Use
  Company Number: PHEH2016US010163

PATIENT
  Sex: Male

DRUGS (2)
  1. ZOFRAN [Suspect]
     Active Substance: ONDANSETRON HYDROCHLORIDE
     Indication: FOETAL EXPOSURE DURING PREGNANCY
     Route: 064
  2. ZOFRAN ODT [Suspect]
     Active Substance: ONDANSETRON HYDROCHLORIDE
     Indication: FOETAL EXPOSURE DURING PREGNANCY
     Route: 064

REACTIONS (17)
  - Congenital anomaly [Unknown]
  - Hypoplastic left heart syndrome [Unknown]
  - Foetal exposure during pregnancy [Unknown]
  - Tooth hypoplasia [Unknown]
  - Anhedonia [Unknown]
  - Cleft palate [Unknown]
  - Mental disorder [Unknown]
  - Pain [Unknown]
  - Emotional distress [Unknown]
  - Cleft lip [Unknown]
  - Micrognathia [Unknown]
  - Developmental delay [Unknown]
  - Speech disorder developmental [Unknown]
  - Multiple congenital abnormalities [Unknown]
  - Injury [Unknown]
  - Pyrexia [Unknown]
  - Anxiety [Unknown]
